FAERS Safety Report 7902109-4 (Version None)
Quarter: 2011Q4

REPORT INFORMATION
  Report Type: 
  Country: None (occurrence: None)
  Receive Date: 20111108
  Receipt Date: 20111102
  Transmission Date: 20120403
  Serious: Yes (Life-Threatening, Other)
  Sender: FDA-Public Use
  Company Number: US-ASTRAZENECA-2011SE59804

PATIENT
  Age: 69 Year
  Sex: Male
  Weight: 79.4 kg

DRUGS (1)
  1. SEROQUEL XR [Suspect]
     Indication: DEPRESSION
     Route: 048
     Dates: start: 20110501

REACTIONS (3)
  - DRUG DOSE OMISSION [None]
  - SUICIDE ATTEMPT [None]
  - SUICIDAL IDEATION [None]
